FAERS Safety Report 11688533 (Version 3)
Quarter: 2016Q1

REPORT INFORMATION
  Report Type: Report from Study
  Country: US (occurrence: US)
  Receive Date: 20151101
  Receipt Date: 20160122
  Transmission Date: 20160525
  Serious: No
  Sender: FDA-Public Use
  Company Number: US-AMGEN-USASP2015111677

PATIENT
  Age: 26 Year
  Sex: Female

DRUGS (6)
  1. ENBREL [Suspect]
     Active Substance: ETANERCEPT
     Indication: RHEUMATOID ARTHRITIS
     Dosage: 50 MG, ONCE A WEEK
     Route: 058
     Dates: start: 20150930
  2. BABY ASPIRIN [Concomitant]
     Active Substance: ASPIRIN
     Dosage: UNK
  3. IBUPROFEN. [Concomitant]
     Active Substance: IBUPROFEN
     Dosage: UNK
  4. PREDNISONE. [Concomitant]
     Active Substance: PREDNISONE
     Dosage: UNK
  5. METHOTREXATE [Concomitant]
     Active Substance: METHOTREXATE
     Dosage: UNK
  6. FOLIC ACID. [Concomitant]
     Active Substance: FOLIC ACID
     Dosage: UNK

REACTIONS (15)
  - Skin exfoliation [Unknown]
  - Injection site urticaria [Unknown]
  - Injection site pruritus [Unknown]
  - Sinusitis [Not Recovered/Not Resolved]
  - Injection site warmth [Unknown]
  - Oral herpes [Unknown]
  - Dry skin [Unknown]
  - Injection site discolouration [Unknown]
  - Injection site swelling [Unknown]
  - Injection site erythema [Unknown]
  - Chills [Recovered/Resolved]
  - Injection site reaction [Unknown]
  - Dehydration [Unknown]
  - Erythema [Recovered/Resolved]
  - Therapeutic response unexpected [Unknown]

NARRATIVE: CASE EVENT DATE: 2015
